FAERS Safety Report 18213346 (Version 1)
Quarter: 2020Q3

REPORT INFORMATION
  Report Type: Spontaneous
  Country: CA (occurrence: CA)
  Receive Date: 20200831
  Receipt Date: 20200831
  Transmission Date: 20201103
  Serious: Yes (Hospitalization)
  Sender: FDA-Public Use
  Company Number: CA-TEVA-2020-CA-1819775

PATIENT
  Age: 36 Year
  Sex: Female

DRUGS (1)
  1. ATAZANAVIR. [Suspect]
     Active Substance: ATAZANAVIR
     Route: 048

REACTIONS (3)
  - Cholelithiasis [Recovered/Resolved]
  - Gilbert^s syndrome [Recovered/Resolved]
  - Jaundice [Recovered/Resolved]
